FAERS Safety Report 7979838-X (Version None)
Quarter: 2011Q4

REPORT INFORMATION
  Report Type: 
  Country: None (occurrence: None)
  Receive Date: 20111201
  Receipt Date: 20111121
  Transmission Date: 20120403
  Serious: Yes (Other)
  Sender: FDA-Public Use
  Company Number: 2011SP054723

PATIENT
  Age: 59 Year
  Sex: Female

DRUGS (5)
  1. PRISTIQ [Concomitant]
  2. INTERFERON ALFA [Suspect]
     Indication: HEPATITIS C
  3. PROMETHAZINE [Concomitant]
  4. RIBAVIRIN [Suspect]
     Indication: HEPATITIS C
  5. VICTRELIS [Suspect]
     Indication: HEPATITIS C
     Dates: start: 20111001

REACTIONS (5)
  - LOSS OF CONSCIOUSNESS [None]
  - MALAISE [None]
  - FATIGUE [None]
  - DRUG DOSE OMISSION [None]
  - PRURITUS [None]
